FAERS Safety Report 24838455 (Version 1)
Quarter: 2025Q1

REPORT INFORMATION
  Report Type: Spontaneous
  Country: US (occurrence: US)
  Receive Date: 20250113
  Receipt Date: 20250113
  Transmission Date: 20250408
  Serious: No
  Sender: PFIZER
  Company Number: US-PFIZER INC-202500004973

PATIENT
  Age: 43 Year
  Sex: Female
  Weight: 88 kg

DRUGS (2)
  1. DEPO-PROVERA [Suspect]
     Active Substance: MEDROXYPROGESTERONE ACETATE
     Indication: Menstrual disorder
     Route: 030
     Dates: start: 20240718
  2. GLIPIZIDE [Concomitant]
     Active Substance: GLIPIZIDE
     Indication: Diabetes mellitus
     Dosage: 10 MG, 2X/DAY

REACTIONS (2)
  - Heavy menstrual bleeding [Unknown]
  - Off label use [Unknown]

NARRATIVE: CASE EVENT DATE: 20240718
